FAERS Safety Report 7313946-1 (Version None)
Quarter: 2011Q1

REPORT INFORMATION
  Report Type: 
  Country: None (occurrence: None)
  Receive Date: 20110216
  Receipt Date: 20110216
  Transmission Date: 20110831
  Serious: Yes (Death, Hospitalization)
  Sender: FDA-Public Use
  Company Number: None

PATIENT
  Sex: Female
  Weight: 73.4827 kg

DRUGS (3)
  1. DILANTIN [Concomitant]
  2. DIFLUCAN [Concomitant]
  3. AMRUBICIN [Suspect]
     Indication: SMALL CELL LUNG CANCER STAGE UNSPECIFIED
     Dosage: 70 MG, DAYS 1-3, IV
     Route: 042
     Dates: start: 20101129, end: 20101201

REACTIONS (3)
  - VOMITING [None]
  - NAUSEA [None]
  - MENTAL STATUS CHANGES [None]
